FAERS Safety Report 6257133-7 (Version None)
Quarter: 2009Q3

REPORT INFORMATION
  Report Type: 
  Country: None (occurrence: None)
  Receive Date: 20090706
  Receipt Date: 20090629
  Transmission Date: 20100115
  Serious: Yes (Other)
  Sender: FDA-Public Use
  Company Number: D0061995A

PATIENT
  Sex: Female

DRUGS (1)
  1. ARIXTRA [Suspect]
     Route: 065

REACTIONS (1)
  - RETROPERITONEAL HAEMORRHAGE [None]
